FAERS Safety Report 6672657-6 (Version None)
Quarter: 2010Q2

REPORT INFORMATION
  Report Type: 
  Country: None (occurrence: None)
  Receive Date: 20100408
  Receipt Date: 20100331
  Transmission Date: 20101027
  Serious: Yes (Death, Hospitalization, Other)
  Sender: FDA-Public Use
  Company Number: US-BAXTER-2010BH004429

PATIENT
  Age: 68 Year
  Sex: Male

DRUGS (1)
  1. DIANEAL [Suspect]
     Indication: PERITONEAL DIALYSIS
     Route: 033
     Dates: end: 20100311

REACTIONS (6)
  - ASTHENIA [None]
  - BLOOD ALBUMIN DECREASED [None]
  - CEREBROVASCULAR ACCIDENT [None]
  - COUGH [None]
  - DISSEMINATED CRYPTOCOCCOSIS [None]
  - PYREXIA [None]
